FAERS Safety Report 26189949 (Version 1)
Quarter: 2025Q4

REPORT INFORMATION
  Report Type: Spontaneous
  Country: US (occurrence: US)
  Receive Date: 20251223
  Receipt Date: 20251223
  Transmission Date: 20260117
  Serious: No
  Sender: ITALFARMACO
  Company Number: US-ITF-2025-003403

PATIENT
  Age: 7 Year
  Sex: Male

DRUGS (1)
  1. DUVYZAT [Suspect]
     Active Substance: GIVINOSTAT

REACTIONS (1)
  - Blood triglycerides increased [Unknown]
